FAERS Safety Report 8731043 (Version 2)
Quarter: 2012Q4

REPORT INFORMATION
  Report Type: 
  Country: CO (occurrence: CO)
  Receive Date: 20120820
  Receipt Date: 20120903
  Transmission Date: 20130627
  Serious: Yes (Other)
  Sender: FDA-Public Use
  Company Number: CO-AMGEN-COLSP2012051467

PATIENT
  Age: 56 Year
  Sex: Female

DRUGS (7)
  1. ENBREL [Suspect]
     Indication: RHEUMATOID ARTHRITIS
     Dosage: 50 mg, weekly
     Route: 058
     Dates: start: 2009
  2. LOSARTAN [Concomitant]
     Indication: HYPERTENSION
     Dosage: 50 mg, 1x/day
     Route: 048
     Dates: start: 2002
  3. TIROXINA [Concomitant]
     Indication: HYPOTHYROIDISM
     Dosage: 100 mg, 1x/day
     Route: 048
     Dates: start: 2008
  4. ASA [Concomitant]
     Dosage: UNK
  5. ERGOCALCIFEROL [Concomitant]
     Dosage: 500 mg, UNK
  6. METOPROLOL [Concomitant]
     Dosage: 100 mg, UNK
  7. SIMETICONE/TRIMEBUTINE [Concomitant]
     Dosage: 300 mg, UNK

REACTIONS (3)
  - Cataract [Unknown]
  - Irritable bowel syndrome [Not Recovered/Not Resolved]
  - Tuberculosis gastrointestinal [Not Recovered/Not Resolved]
